FAERS Safety Report 24178997 (Version 1)
Quarter: 2024Q3

REPORT INFORMATION
  Report Type: Spontaneous
  Country: US (occurrence: US)
  Receive Date: 20240806
  Receipt Date: 20240806
  Transmission Date: 20241017
  Serious: No
  Sender: SANOFI AVENTIS
  Company Number: US-SA-SAC20240731000638

PATIENT
  Sex: Female

DRUGS (1)
  1. DUPIXENT [Suspect]
     Active Substance: DUPILUMAB
     Indication: Dermatitis atopic
     Dosage: UNK
     Route: 058

REACTIONS (8)
  - Osteitis [Unknown]
  - Headache [Unknown]
  - Gait disturbance [Unknown]
  - Pharyngeal inflammation [Unknown]
  - Inflammation [Unknown]
  - Dizziness [Unknown]
  - Injection site pain [Unknown]
  - Arthralgia [Unknown]
